FAERS Safety Report 7791744-2 (Version None)
Quarter: 2011Q4

REPORT INFORMATION
  Report Type: 
  Country: None (occurrence: None)
  Receive Date: 20111003
  Receipt Date: 20110926
  Transmission Date: 20120403
  Serious: No
  Sender: FDA-Public Use
  Company Number: US-PFIZER INC-2011229610

PATIENT
  Sex: Female

DRUGS (2)
  1. DIFLUCAN [Suspect]
     Indication: FUNGAL SKIN INFECTION
     Dosage: 100 MG, 1X/DAY
  2. DIFLUCAN [Suspect]
     Dosage: 400 MG, 1X/DAY

REACTIONS (1)
  - DRUG INEFFECTIVE [None]
